FAERS Safety Report 8176036-4 (Version None)
Quarter: 2012Q1

REPORT INFORMATION
  Report Type: 
  Country: None (occurrence: None)
  Receive Date: 20120301
  Receipt Date: 20120228
  Transmission Date: 20120608
  Serious: No
  Sender: FDA-Public Use
  Company Number: US-PFIZER INC-2012053187

PATIENT
  Sex: Female
  Weight: 45.805 kg

DRUGS (1)
  1. CHILDREN'S ADVIL [Suspect]
     Indication: MUSCLE SPASMS
     Dosage: UNK, 1X/DAY
     Route: 048
     Dates: start: 20120225, end: 20120228

REACTIONS (2)
  - VOMITING [None]
  - NAUSEA [None]
